FAERS Safety Report 23880415 (Version 1)
Quarter: 2024Q2

REPORT INFORMATION
  Report Type: Spontaneous
  Country: KR (occurrence: KR)
  Receive Date: 20240521
  Receipt Date: 20240521
  Transmission Date: 20240716
  Serious: Yes (Hospitalization)
  Sender: FDA-Public Use
  Company Number: KR-ELI_LILLY_AND_COMPANY-KR202405009600

PATIENT
  Age: 77 Year
  Sex: Male
  Weight: 46 kg

DRUGS (60)
  1. PEMETREXED [Suspect]
     Active Substance: PEMETREXED
     Indication: Non-small cell lung cancer stage IV
     Dosage: 500 MG/SQ. METER/DAY, EVERY 3 WEEKS
     Route: 042
     Dates: start: 20240115
  2. PEMETREXED [Suspect]
     Active Substance: PEMETREXED
     Dosage: 375 MG/SQ. METER/DAY, EVERY 3 WEEKS
     Route: 042
     Dates: start: 20240206, end: 20240327
  3. PEMBROLIZUMAB [Suspect]
     Active Substance: PEMBROLIZUMAB
     Indication: Non-small cell lung cancer stage IV
     Dosage: 200 MG, EVERY 3 WEEKS
     Route: 042
     Dates: start: 20240115, end: 20240327
  4. CARBOPLATIN [Suspect]
     Active Substance: CARBOPLATIN
     Indication: Non-small cell lung cancer stage IV
     Dosage: 5 AUC, EVERY 3 WEEKS
     Route: 042
     Dates: start: 20240115
  5. CARBOPLATIN [Suspect]
     Active Substance: CARBOPLATIN
     Dosage: 4 AUC, EVERY 3 WEEKS
     Route: 042
     Dates: start: 20240206, end: 20240327
  6. ALBUMIN HUMAN [Concomitant]
     Active Substance: ALBUMIN HUMAN
     Indication: Product used for unknown indication
     Dosage: UNK
     Dates: start: 20240125, end: 20240125
  7. PLASMA SOLUTION A [Concomitant]
     Indication: Product used for unknown indication
     Dosage: UNK
     Dates: start: 20240125, end: 20240125
  8. VITAMINS [Concomitant]
     Active Substance: VITAMINS
     Indication: Product used for unknown indication
     Dosage: UNK
     Dates: start: 20240125
  9. SODIUM BICARBONATE [Concomitant]
     Active Substance: SODIUM BICARBONATE
     Indication: Product used for unknown indication
     Dosage: UNK
     Dates: start: 20240126, end: 20240207
  10. METRYNAL [Concomitant]
     Indication: Product used for unknown indication
     Dosage: UNK
     Dates: start: 20240125, end: 20240131
  11. BIOFLOR [Concomitant]
     Indication: Product used for unknown indication
     Dosage: UNK
     Dates: start: 20240129
  12. SODIUM CHLORIDE [Concomitant]
     Active Substance: SODIUM CHLORIDE
     Indication: Product used for unknown indication
     Dosage: UNK
     Dates: start: 20240128, end: 20240128
  13. CALCIUM POLYSTYRENE SULFONATE [Concomitant]
     Active Substance: CALCIUM POLYSTYRENE SULFONATE
     Indication: Product used for unknown indication
     Dosage: UNK
     Dates: start: 20240126, end: 20240126
  14. CALCIUM CARBONATE\CHOLECALCIFEROL [Concomitant]
     Active Substance: CALCIUM CARBONATE\CHOLECALCIFEROL
     Indication: Product used for unknown indication
     Dosage: UNK
     Dates: start: 20240122, end: 20240129
  15. MEGACE F [Concomitant]
     Indication: Product used for unknown indication
     Dosage: UNK
     Dates: start: 20240128
  16. HUMULIN R [Concomitant]
     Active Substance: INSULIN HUMAN
     Indication: Product used for unknown indication
     Dosage: UNK
     Dates: start: 20240126, end: 20240131
  17. ATIVAN [Concomitant]
     Active Substance: LORAZEPAM
     Indication: Product used for unknown indication
     Dosage: UNK
     Dates: start: 20240127, end: 20240127
  18. QUETIAPINE FUMARATE [Concomitant]
     Active Substance: QUETIAPINE FUMARATE
     Indication: Product used for unknown indication
     Dosage: UNK
     Dates: start: 20240128
  19. ULTRACET ER SEMI [Concomitant]
     Indication: Product used for unknown indication
     Dosage: UNK
  20. NALOXONE HYDROCHLORIDE\OXYCODONE HYDROCHLORIDE [Concomitant]
     Active Substance: NALOXONE HYDROCHLORIDE\OXYCODONE HYDROCHLORIDE
     Indication: Product used for unknown indication
     Dosage: UNK
  21. OXYCODONE HYDROCHLORIDE [Concomitant]
     Active Substance: OXYCODONE HYDROCHLORIDE
     Indication: Product used for unknown indication
     Dosage: UNK
  22. KANARB [Concomitant]
     Indication: Product used for unknown indication
     Dosage: UNK
  23. HERBALS [Concomitant]
     Active Substance: HERBALS
     Indication: Product used for unknown indication
     Dosage: UNK
  24. ENCOVER [Concomitant]
     Indication: Product used for unknown indication
     Dosage: UNK
  25. MIRABEGRON [Concomitant]
     Active Substance: MIRABEGRON
     Indication: Product used for unknown indication
     Dosage: UNK
  26. HARNAL [Concomitant]
     Active Substance: TAMSULOSIN HYDROCHLORIDE
     Indication: Product used for unknown indication
     Dosage: UNK
  27. MAGMIL S [Concomitant]
     Indication: Product used for unknown indication
     Dosage: UNK
  28. DULACKHAN EASY [Concomitant]
     Indication: Product used for unknown indication
     Dosage: UNK
  29. FEROBA YOU SR [Concomitant]
     Indication: Product used for unknown indication
     Dosage: UNK
  30. LEVOTHYROXINE SODIUM [Concomitant]
     Active Substance: LEVOTHYROXINE SODIUM
     Indication: Product used for unknown indication
     Dosage: UNK
  31. FOLIC ACID [Concomitant]
     Active Substance: FOLIC ACID
     Indication: Product used for unknown indication
     Dosage: UNK
     Dates: end: 20240327
  32. LANOBIN [Concomitant]
     Indication: Product used for unknown indication
     Dosage: UNK
     Dates: end: 20240327
  33. ALOXI [Concomitant]
     Active Substance: PALONOSETRON HYDROCHLORIDE
     Indication: Product used for unknown indication
     Dosage: UNK
     Dates: start: 20240115, end: 20240327
  34. DEXAMETHASONE [Concomitant]
     Active Substance: DEXAMETHASONE
     Indication: Product used for unknown indication
     Dosage: UNK
     Dates: start: 20240115, end: 20240327
  35. EMEND (FOSAPREPITANT DIMEGLUMINE) [Concomitant]
     Active Substance: FOSAPREPITANT DIMEGLUMINE
     Indication: Product used for unknown indication
     Dosage: UNK
     Dates: start: 20240115, end: 20240327
  36. TAPOCIN [Concomitant]
     Indication: Product used for unknown indication
     Dosage: UNK
     Dates: start: 20240127, end: 20240131
  37. NEXIUM [Concomitant]
     Active Substance: ESOMEPRAZOLE MAGNESIUM
     Indication: Product used for unknown indication
     Dosage: UNK
     Dates: start: 20240125, end: 20240131
  38. TRAMADOL HYDROCHLORIDE [Concomitant]
     Active Substance: TRAMADOL HYDROCHLORIDE
     Indication: Product used for unknown indication
     Dosage: UNK
     Dates: start: 20240213, end: 20240219
  39. FENTANYL [Concomitant]
     Active Substance: FENTANYL\FENTANYL CITRATE
     Indication: Product used for unknown indication
     Dosage: UNK
     Dates: start: 20240219
  40. MORPHINE SULFATE [Concomitant]
     Active Substance: MORPHINE SULFATE
     Indication: Product used for unknown indication
     Dosage: UNK
     Dates: start: 20240225
  41. NORVASC [Concomitant]
     Active Substance: AMLODIPINE BESYLATE
     Indication: Product used for unknown indication
     Dosage: UNK
     Dates: start: 20240222
  42. COZAAR [Concomitant]
     Active Substance: LOSARTAN POTASSIUM
     Indication: Product used for unknown indication
     Dosage: UNK
     Dates: start: 20240205, end: 20240208
  43. HYGROTON [Concomitant]
     Active Substance: CHLORTHALIDONE
     Indication: Product used for unknown indication
     Dosage: UNK
     Dates: start: 20240205, end: 20240208
  44. TANTUM [BENZYDAMINE HYDROCHLORIDE] [Concomitant]
     Indication: Product used for unknown indication
     Dosage: UNK
     Dates: start: 20240212
  45. NYSTATIN [Concomitant]
     Active Substance: NYSTATIN
     Indication: Product used for unknown indication
     Dosage: UNK
     Dates: start: 20240212
  46. HEXOMEDINE [HEXAMIDINE ISETIONATE] [Concomitant]
     Indication: Product used for unknown indication
     Dosage: UNK
     Dates: start: 20240214, end: 20240214
  47. ACETYLCYSTEINE [Concomitant]
     Active Substance: ACETYLCYSTEINE
     Indication: Product used for unknown indication
     Dosage: UNK
     Dates: start: 20240214, end: 20240317
  48. LASIX [Concomitant]
     Active Substance: FUROSEMIDE
     Indication: Product used for unknown indication
     Dosage: UNK
     Dates: start: 20240218, end: 20240218
  49. XANAX [Concomitant]
     Active Substance: ALPRAZOLAM
     Indication: Product used for unknown indication
     Dosage: UNK
     Dates: start: 20240221
  50. DULCOLAX (BISACODYL) [Concomitant]
     Active Substance: BISACODYL
     Indication: Product used for unknown indication
     Dosage: UNK
     Dates: start: 20240225
  51. KYNEX 3 [Concomitant]
     Indication: Product used for unknown indication
     Dosage: UNK
     Dates: start: 20240226, end: 20240226
  52. GLYCERIN [Concomitant]
     Active Substance: GLYCERIN
     Indication: Product used for unknown indication
     Dosage: UNK
     Dates: start: 20240307, end: 20240307
  53. ERDOSTEINE [Concomitant]
     Active Substance: ERDOSTEINE
     Indication: Product used for unknown indication
     Dosage: UNK
  54. PARAFFIN [Concomitant]
     Active Substance: PARAFFIN
     Indication: Product used for unknown indication
     Dosage: UNK
     Dates: start: 20240215
  55. TOPISOL [METHYLPREDNISOLONE ACEPONATE] [Concomitant]
     Indication: Product used for unknown indication
     Dosage: UNK
     Dates: start: 20240216
  56. MEDISOLU [METHYLPREDNISOLONE] [Concomitant]
     Indication: Product used for unknown indication
     Dosage: UNK
     Dates: start: 20240220, end: 20240227
  57. BEAROBAN [Concomitant]
     Indication: Product used for unknown indication
     Dosage: UNK
     Dates: start: 20240226
  58. ISOCONAZOLE NITRATE [Concomitant]
     Active Substance: ISOCONAZOLE NITRATE
     Indication: Product used for unknown indication
     Dosage: UNK
     Dates: start: 20240226
  59. PENIRAMIN [Concomitant]
     Indication: Product used for unknown indication
     Dosage: UNK
     Dates: start: 20240214
  60. ROLONTIS [Concomitant]
     Indication: Product used for unknown indication
     Dosage: UNK
     Dates: start: 20240207, end: 20240207

REACTIONS (6)
  - Adrenal insufficiency [Unknown]
  - Pancytopenia [Recovered/Resolved]
  - Septic shock [Unknown]
  - Diarrhoea [Recovered/Resolved]
  - Haemoglobin decreased [Unknown]
  - Decreased appetite [Unknown]

NARRATIVE: CASE EVENT DATE: 20240122
